FAERS Safety Report 6368997-0 (Version None)
Quarter: 2009Q3

REPORT INFORMATION
  Report Type: 
  Country: None (occurrence: None)
  Receive Date: 20090916
  Receipt Date: 20090908
  Transmission Date: 20100115
  Serious: Yes (Other)
  Sender: FDA-Public Use
  Company Number: ADR19622009

PATIENT
  Age: 43 Year
  Sex: Female

DRUGS (6)
  1. SERTRALINE HCL [Suspect]
     Indication: DEPRESSION
     Dosage: 50MG, ORAL
     Route: 048
     Dates: start: 20080204, end: 20080206
  2. IBUPROFEN [Concomitant]
  3. LOFEPRAMINE [Concomitant]
  4. MIRTAZAPINE [Concomitant]
  5. PARACETAMOL [Concomitant]
  6. TRANEXAMIC ACID [Concomitant]

REACTIONS (7)
  - CHEST DISCOMFORT [None]
  - DYSPHAGIA [None]
  - MALAISE [None]
  - MUSCLE SPASMS [None]
  - MYDRIASIS [None]
  - OROPHARYNGEAL PAIN [None]
  - TERMINAL INSOMNIA [None]
